FAERS Safety Report 6577887-X (Version None)
Quarter: 2010Q1

REPORT INFORMATION
  Report Type: 
  Country: None (occurrence: None)
  Receive Date: 20100211
  Receipt Date: 20100205
  Transmission Date: 20100710
  Serious: Yes (Hospitalization)
  Sender: FDA-Public Use
  Company Number: US-PFIZER INC-2010016649

PATIENT
  Sex: Female
  Weight: 68.027 kg

DRUGS (2)
  1. DEPO-PROVERA [Suspect]
     Indication: CONTRACEPTION
     Dosage: UNK
     Dates: start: 20091204
  2. ALLEGRA [Concomitant]
     Indication: ALLERGIC SINUSITIS

REACTIONS (1)
  - INJECTION SITE ABSCESS [None]
